FAERS Safety Report 19393626 (Version 1)
Quarter: 2021Q2

REPORT INFORMATION
  Report Type: Spontaneous
  Country: US (occurrence: US)
  Receive Date: 20210608
  Receipt Date: 20210608
  Transmission Date: 20210717
  Serious: Yes (Other)
  Sender: FDA-Public Use
  Company Number: None

PATIENT
  Age: 73 Year
  Sex: Female
  Weight: 67.5 kg

DRUGS (7)
  1. COSAAR [Concomitant]
     Active Substance: LOSARTAN POTASSIUM
  2. MAGNESIUM [Concomitant]
     Active Substance: MAGNESIUM
  3. ESTRADIOL. [Suspect]
     Active Substance: ESTRADIOL
     Indication: DRY SKIN
     Dosage: ?          QUANTITY:1 1 GRAM;?
     Route: 067
     Dates: start: 20210503, end: 20210507
  4. VITAMINS [Concomitant]
     Active Substance: VITAMINS
  5. FLORASTAR [Suspect]
     Active Substance: SACCHAROMYCES CEREVISIAE
  6. CALCIUM [Concomitant]
     Active Substance: CALCIUM
  7. GLUCOSAMINE [Concomitant]
     Active Substance: GLUCOSAMINE

REACTIONS (5)
  - Localised infection [None]
  - Erythema [None]
  - Pain [None]
  - Discomfort [None]
  - Proctalgia [None]

NARRATIVE: CASE EVENT DATE: 20210507
